FAERS Safety Report 5267302-0 (Version None)
Quarter: 2007Q1

REPORT INFORMATION
  Report Type: 
  Country: None (occurrence: None)
  Receive Date: 20070316
  Receipt Date: 20070313
  Transmission Date: 20070707
  Serious: Yes (Other)
  Sender: FDA-Public Use
  Company Number: JP-JPN-A200700846

PATIENT
  Age: 5 Year
  Sex: Male
  Weight: 18.7 kg

DRUGS (2)
  1. RELENZA [Suspect]
     Indication: INFLUENZA
     Dosage: 10MG TWICE PER DAY
     Route: 055
     Dates: start: 20070216, end: 20070220
  2. ACETAMINOPHEN [Concomitant]
     Route: 054
     Dates: start: 20070216

REACTIONS (5)
  - ABNORMAL BEHAVIOUR [None]
  - AGITATION [None]
  - HALLUCINATION [None]
  - SPEECH DISORDER [None]
  - URINARY INCONTINENCE [None]
